FAERS Safety Report 4308500-X (Version None)
Quarter: 2004Q1

REPORT INFORMATION
  Report Type: 
  Country: None (occurrence: None)
  Receive Date: 20040301
  Receipt Date: 20040120
  Transmission Date: 20041129
  Serious: Yes (Life-Threatening, Other)
  Sender: FDA-Public Use
  Company Number: PHBS2004JP01091

PATIENT
  Age: 75 Year
  Sex: Female
  Weight: 68 kg

DRUGS (7)
  1. TEGRETOL [Suspect]
     Indication: MULTIPLE SCLEROSIS
     Dosage: 200 MG/DAY
     Route: 048
     Dates: start: 20031204, end: 20031211
  2. TEGRETOL [Suspect]
     Dosage: 400 MG/DAY
     Route: 048
     Dates: start: 20031212, end: 20031215
  3. ACINON [Concomitant]
     Dosage: 300 MG/DAY
     Route: 048
     Dates: start: 20031205
  4. MUCOSTA [Concomitant]
     Dosage: 300 MG/DAY
     Route: 048
     Dates: start: 20031205
  5. MYSLEE [Concomitant]
     Dosage: 10 MG
     Route: 048
     Dates: start: 20031205
  6. PURSENNID [Concomitant]
     Dosage: 24 MG/DAY
     Route: 048
     Dates: start: 20031209
  7. SOLU-MEDROL [Concomitant]
     Dosage: 1000 MG
     Route: 065
     Dates: start: 20031205, end: 20031214

REACTIONS (9)
  - C-REACTIVE PROTEIN INCREASED [None]
  - DERMATITIS ALLERGIC [None]
  - DISSEMINATED INTRAVASCULAR COAGULATION [None]
  - EOSINOPHIL COUNT INCREASED [None]
  - ERYTHEMA [None]
  - LYMPHOCYTE COUNT ABNORMAL [None]
  - PETECHIAE [None]
  - PLATELET COUNT DECREASED [None]
  - PYREXIA [None]
